FAERS Safety Report 7918611-5 (Version None)
Quarter: 2011Q4

REPORT INFORMATION
  Report Type: 
  Country: None (occurrence: None)
  Receive Date: 20111116
  Receipt Date: 20111115
  Transmission Date: 20120403
  Serious: Yes (Other)
  Sender: FDA-Public Use
  Company Number: LU-PFIZER INC-2011228098

PATIENT
  Age: 85 Year
  Sex: Male
  Weight: 80 kg

DRUGS (8)
  1. ZYVOX [Suspect]
     Route: 042
  2. KALINOR RETARD [Concomitant]
  3. COZAAR [Concomitant]
  4. LASIX [Concomitant]
  5. AMLODIPINE BESYLATE [Concomitant]
  6. ENOXAPARIN SODIUM [Concomitant]
  7. TAMSULOSIN [Concomitant]
  8. BUPRENORPHINE HCL [Interacting]

REACTIONS (2)
  - DRUG INTERACTION [None]
  - RESPIRATORY DEPRESSION [None]
